FAERS Safety Report 6803331-0 (Version None)
Quarter: 2010Q2

REPORT INFORMATION
  Report Type: 
  Country: None (occurrence: None)
  Receive Date: 20100628
  Receipt Date: 20100617
  Transmission Date: 20101027
  Serious: Yes (Other)
  Sender: FDA-Public Use
  Company Number: US-SANOFI-AVENTIS-2010SA032211

PATIENT
  Age: 47 Year
  Sex: Female
  Weight: 104 kg

DRUGS (4)
  1. LANTUS [Suspect]
     Indication: TYPE 2 DIABETES MELLITUS
     Route: 058
     Dates: start: 20060101
  2. LANTUS [Suspect]
     Route: 058
     Dates: start: 20060101
  3. SOLOSTAR [Suspect]
     Dates: start: 20060101
  4. SOLOSTAR [Suspect]
     Dates: start: 20060101

REACTIONS (3)
  - EYE OPERATION [None]
  - INJURY ASSOCIATED WITH DEVICE [None]
  - VISUAL IMPAIRMENT [None]
